FAERS Safety Report 9477398 (Version 2)
Quarter: 2013Q3

REPORT INFORMATION
  Report Type: Spontaneous
  Country: US (occurrence: US)
  Receive Date: 20130826
  Receipt Date: 20130906
  Transmission Date: 20140515
  Serious: Yes (Other)
  Sender: FDA-Public Use
  Company Number: CHPA2013US013235

PATIENT
  Age: 52 Year
  Sex: Female

DRUGS (4)
  1. CVS [Suspect]
     Indication: SMOKING CESSATION THERAPY
     Dosage: 21 MG, QD
     Route: 062
     Dates: start: 2013, end: 201308
  2. HABITROL [Suspect]
     Indication: SMOKING CESSATION THERAPY
     Dosage: 14 MG, QD
     Route: 062
     Dates: start: 201308
  3. TOPROL [Suspect]
     Indication: HEART RATE INCREASED
     Dosage: UNK,UNK
  4. XANAX [Concomitant]
     Dosage: UNK,UNK

REACTIONS (6)
  - Fungal infection [Recovered/Resolved]
  - Gastrooesophageal reflux disease [Unknown]
  - Fatigue [Unknown]
  - Somnolence [Unknown]
  - Irritability [Unknown]
  - Incorrect drug administration duration [Unknown]
